FAERS Safety Report 21805270 (Version 1)
Quarter: 2023Q1

REPORT INFORMATION
  Report Type: Report from Study
  Country: US (occurrence: US)
  Receive Date: 20230102
  Receipt Date: 20230102
  Transmission Date: 20230418
  Serious: No
  Sender: FDA-Public Use
  Company Number: US-ABBVIE-4222884

PATIENT
  Sex: Female

DRUGS (6)
  1. HUMIRA [Suspect]
     Active Substance: ADALIMUMAB
     Indication: Juvenile idiopathic arthritis
     Dosage: CITRATE FREE
     Route: 058
     Dates: end: 20220528
  2. HUMIRA [Suspect]
     Active Substance: ADALIMUMAB
     Dosage: CITRATE FREE
     Route: 058
  3. ENZYME DIGEST [Concomitant]
     Indication: Product used for unknown indication
  4. IONAX [Concomitant]
     Indication: Product used for unknown indication
  5. IMMUNE SUPPORT [Concomitant]
     Indication: Product used for unknown indication
  6. FLINTSTONES [Concomitant]
     Indication: Product used for unknown indication

REACTIONS (1)
  - Unevaluable event [Unknown]
